FAERS Safety Report 5169268-0 (Version None)
Quarter: 2006Q4

REPORT INFORMATION
  Report Type: 
  Country: None (occurrence: None)
  Receive Date: 20061211
  Receipt Date: 20061130
  Transmission Date: 20070319
  Serious: Yes (Death, Hospitalization)
  Sender: FDA-Public Use
  Company Number: US-AMGEN-US202323

PATIENT
  Sex: Female

DRUGS (13)
  1. PANITUMUMAB [Suspect]
     Indication: COLORECTAL CANCER
     Route: 042
     Dates: start: 20060906, end: 20061101
  2. AVASTIN [Suspect]
     Route: 042
  3. IRINOTECAN HCL [Concomitant]
     Route: 042
  4. FLUOROURACIL [Concomitant]
     Route: 042
  5. LEUCOVORIN CALCIUM [Concomitant]
     Route: 042
  6. LOPRESSOR [Concomitant]
     Route: 048
  7. ZOLOFT [Concomitant]
     Route: 048
  8. ZOLOFT [Concomitant]
     Route: 048
  9. MUCINEX [Concomitant]
     Route: 048
  10. LOVENOX [Concomitant]
     Route: 058
  11. SANDOSTATIN [Concomitant]
     Route: 065
  12. PROVENTIL [Concomitant]
     Route: 065
  13. PREVACID [Concomitant]
     Route: 048

REACTIONS (12)
  - ALANINE AMINOTRANSFERASE INCREASED [None]
  - ASPARTATE AMINOTRANSFERASE INCREASED [None]
  - GENERAL PHYSICAL HEALTH DETERIORATION [None]
  - HYPOTENSION [None]
  - HYPOXIC ENCEPHALOPATHY [None]
  - INTESTINAL PERFORATION [None]
  - METABOLIC ACIDOSIS [None]
  - PLATELET COUNT INCREASED [None]
  - REFUSAL OF TREATMENT BY RELATIVE [None]
  - SMALL INTESTINAL PERFORATION [None]
  - VENA CAVA THROMBOSIS [None]
  - WHITE BLOOD CELL COUNT INCREASED [None]
